FAERS Safety Report 19734544 (Version 1)
Quarter: 2021Q3

REPORT INFORMATION
  Report Type: Spontaneous
  Country: TW (occurrence: TW)
  Receive Date: 20210823
  Receipt Date: 20210823
  Transmission Date: 20211014
  Serious: Yes (Death, Other)
  Sender: FDA-Public Use
  Company Number: TW-009507513-2108TWN004243

PATIENT
  Age: 87 Year
  Sex: Male

DRUGS (1)
  1. KEYTRUDA [Suspect]
     Active Substance: PEMBROLIZUMAB
     Indication: TRANSITIONAL CELL CARCINOMA
     Dosage: 100 MG, Q3W
     Route: 041
     Dates: start: 20190703, end: 20191115

REACTIONS (4)
  - Urinary retention [Unknown]
  - Drowning [Fatal]
  - Bladder tamponade [Unknown]
  - Transitional cell carcinoma [Unknown]

NARRATIVE: CASE EVENT DATE: 20190918
